FAERS Safety Report 5375340-2 (Version None)
Quarter: 2007Q2

REPORT INFORMATION
  Report Type: 
  Country: None (occurrence: None)
  Receive Date: 20070629
  Receipt Date: 20070621
  Transmission Date: 20071010
  Serious: Yes (Other)
  Sender: FDA-Public Use
  Company Number: FR-ASTRAZENECA-2007CG00978

PATIENT
  Age: 58 Year
  Sex: Female

DRUGS (2)
  1. NEXIUM [Suspect]
     Indication: OESOPHAGEAL ACHALASIA
     Route: 048
     Dates: start: 20061101
  2. HORMONE REPLACEMENT THERAPY [Concomitant]
     Indication: MENOPAUSE

REACTIONS (2)
  - FOOT FRACTURE [None]
  - OSTEOPOROSIS [None]
